FAERS Safety Report 8118355-3 (Version None)
Quarter: 2012Q1

REPORT INFORMATION
  Report Type: 
  Country: None (occurrence: None)
  Receive Date: 20120207
  Receipt Date: 20120201
  Transmission Date: 20120608
  Serious: Yes (Hospitalization, Other)
  Sender: FDA-Public Use
  Company Number: GR-PFIZER INC-2012027222

PATIENT
  Age: 50 Year
  Sex: Male

DRUGS (3)
  1. NEURONTIN [Suspect]
     Dosage: 300 MG, 3X/DAY
     Route: 048
     Dates: start: 20120128, end: 20120130
  2. NEURONTIN [Interacting]
     Dosage: 300 MG, 1X/DAY
     Route: 048
     Dates: start: 20120131, end: 20120131
  3. STEDON [Interacting]
     Dosage: UNK
     Route: 048

REACTIONS (3)
  - COMA [None]
  - DRUG DISPENSING ERROR [None]
  - DRUG INTERACTION [None]
